FAERS Safety Report 11483975 (Version 1)
Quarter: 2015Q3

REPORT INFORMATION
  Report Type: Spontaneous
  Country: US (occurrence: US)
  Receive Date: 20150903
  Receipt Date: 20150903
  Transmission Date: 20151125
  Serious: No
  Sender: FDA-Public Use
  Company Number: US-ELI_LILLY_AND_COMPANY-US201208003138

PATIENT
  Age: 42 Year
  Sex: Male

DRUGS (3)
  1. CYMBALTA [Suspect]
     Active Substance: DULOXETINE HYDROCHLORIDE
     Indication: DIABETIC NEUROPATHY
     Dosage: 60 MG, BID
     Route: 065
  2. CRESTOR [Concomitant]
     Active Substance: ROSUVASTATIN CALCIUM
  3. LYRICA [Concomitant]
     Active Substance: PREGABALIN

REACTIONS (7)
  - Chest pain [Not Recovered/Not Resolved]
  - Photopsia [Not Recovered/Not Resolved]
  - Depersonalisation [Not Recovered/Not Resolved]
  - Anxiety [Unknown]
  - Nightmare [Not Recovered/Not Resolved]
  - Drug withdrawal syndrome [Not Recovered/Not Resolved]
  - Paraesthesia [Not Recovered/Not Resolved]
